FAERS Safety Report 16433088 (Version 1)
Quarter: 2019Q2

REPORT INFORMATION
  Report Type: Spontaneous
  Country: US (occurrence: US)
  Receive Date: 20190614
  Receipt Date: 20190614
  Transmission Date: 20190711
  Serious: No
  Sender: FDA-Public Use
  Company Number: US-JNJFOC-20170103845

PATIENT
  Age: 71 Year
  Sex: Female

DRUGS (1)
  1. IMBRUVICA [Suspect]
     Active Substance: IBRUTINIB
     Indication: CHRONIC LYMPHOCYTIC LEUKAEMIA
     Route: 048
     Dates: start: 2016, end: 201612

REACTIONS (4)
  - Rash [Recovered/Resolved]
  - Pneumocystis jirovecii infection [Recovered/Resolved]
  - Contusion [Unknown]
  - Petechiae [Unknown]

NARRATIVE: CASE EVENT DATE: 2016
